FAERS Safety Report 7705420-5 (Version None)
Quarter: 2011Q3

REPORT INFORMATION
  Report Type: 
  Country: None (occurrence: None)
  Receive Date: 20110823
  Receipt Date: 20110823
  Transmission Date: 20111222
  Serious: Yes (Hospitalization)
  Sender: FDA-Public Use
  Company Number: None

PATIENT
  Sex: Male
  Weight: 108 kg

DRUGS (7)
  1. CISPLATIN [Suspect]
     Dosage: 170 MG
  2. TAXOL [Suspect]
     Dosage: 408 MG
  3. OXYCODONE HCL [Concomitant]
  4. ASPIRIN [Concomitant]
  5. LISINOPRIL [Concomitant]
  6. SIMAVASTATIN [Concomitant]
  7. ERBITUX [Suspect]
     Dosage: 1476 MG

REACTIONS (2)
  - THROMBOSIS IN DEVICE [None]
  - CHEST PAIN [None]
